FAERS Safety Report 19611411 (Version 3)
Quarter: 2021Q4

REPORT INFORMATION
  Report Type: Spontaneous
  Country: CA (occurrence: CA)
  Receive Date: 20210726
  Receipt Date: 20211101
  Transmission Date: 20220303
  Serious: Yes (Death, Hospitalization, Other)
  Sender: FDA-Public Use
  Company Number: CA-NAPPMUNDI-GBR-2021-0089120

PATIENT
  Age: 74 Year
  Sex: Female

DRUGS (39)
  1. SENOKOT [Suspect]
     Active Substance: SENNOSIDES
     Indication: Product used for unknown indication
     Dosage: UNK UNK, DAILY (1 EVERY 1 DAYS)
     Route: 048
  2. DILAUDID [Suspect]
     Active Substance: HYDROMORPHONE HYDROCHLORIDE
     Indication: Product used for unknown indication
     Dosage: UNK (1 EVERY 4 HOURS)
     Route: 048
  3. DILAUDID [Suspect]
     Active Substance: HYDROMORPHONE HYDROCHLORIDE
     Dosage: UNK, Q4H, 1 MONTH
     Route: 048
  4. DILAUDID [Suspect]
     Active Substance: HYDROMORPHONE HYDROCHLORIDE
     Dosage: UNK, Q4H, 1 MONTH
     Route: 048
  5. MORPHINE SULFATE [Suspect]
     Active Substance: MORPHINE SULFATE
     Indication: Product used for unknown indication
     Dosage: UNK UNK, DAILY (4 EVERY 1 DAYS)
     Route: 048
  6. ACETAMINOPHEN\CODEINE PHOSPHATE [Suspect]
     Active Substance: ACETAMINOPHEN\CODEINE PHOSPHATE
     Indication: Product used for unknown indication
     Dosage: UNK
     Route: 048
  7. AMINO ACIDS\FRUCTOSE\MINERALS [Suspect]
     Active Substance: AMINO ACIDS\FRUCTOSE\MINERALS
     Indication: Product used for unknown indication
     Dosage: UNK (2 EVERY 1 DAYS)
     Route: 048
  8. AMINO ACIDS\FRUCTOSE\MINERALS [Suspect]
     Active Substance: AMINO ACIDS\FRUCTOSE\MINERALS
     Dosage: UNK, BID, 3 MONTHS
     Route: 065
  9. AMINO ACIDS\FRUCTOSE\MINERALS [Suspect]
     Active Substance: AMINO ACIDS\FRUCTOSE\MINERALS
     Dosage: UNK, BID, 3 MONTHS
     Route: 065
  10. AMLODIPINE [Suspect]
     Active Substance: AMLODIPINE BESYLATE
     Indication: Product used for unknown indication
     Dosage: UNK (EVERY 1 DAYS)
     Route: 048
  11. AMLODIPINE [Suspect]
     Active Substance: AMLODIPINE BESYLATE
     Dosage: UNK, DAILY
     Route: 065
  12. AMLODIPINE [Suspect]
     Active Substance: AMLODIPINE BESYLATE
     Dosage: UNK, DAILY
     Route: 065
  13. ATORVASTATIN [Suspect]
     Active Substance: ATORVASTATIN
     Indication: Product used for unknown indication
     Dosage: UNK UNK, DAILY (1 EVERY 1 DAYS)
     Route: 048
  14. ATORVASTATIN [Suspect]
     Active Substance: ATORVASTATIN
     Dosage: UNK, DAILY
     Route: 065
  15. ATORVASTATIN [Suspect]
     Active Substance: ATORVASTATIN
     Dosage: UNK, DAILY
     Route: 065
  16. IRON\MINERALS\VITAMINS [Suspect]
     Active Substance: IRON\MINERALS\VITAMINS
     Indication: Product used for unknown indication
     Dosage: UNK
     Route: 048
  17. BISACODYL [Suspect]
     Active Substance: BISACODYL
     Indication: Product used for unknown indication
     Dosage: UNK
     Route: 054
  18. CALCIUM CARBONATE [Suspect]
     Active Substance: CALCIUM CARBONATE
     Indication: Product used for unknown indication
     Dosage: UNK UNK, DAILY (1 EVERY 1 DAYS)
     Route: 048
  19. CLOPIDOGREL BISULFATE [Suspect]
     Active Substance: CLOPIDOGREL BISULFATE
     Indication: Product used for unknown indication
     Dosage: UNK UNK, DAILY (1 EVERY 1 DAYS)
     Route: 048
  20. CLOZAPINE [Suspect]
     Active Substance: CLOZAPINE
     Indication: Product used for unknown indication
     Dosage: UNK
     Route: 065
  21. CLOZAPINE [Suspect]
     Active Substance: CLOZAPINE
     Dosage: UNK UNK, DAILY (1 EVERY 1 DAYS)
     Route: 048
  22. ERGOCALCIFEROL [Suspect]
     Active Substance: ERGOCALCIFEROL
     Indication: Product used for unknown indication
     Dosage: UNK UNK, DAILY (1 EVERY 1 DAYS)
     Route: 048
  23. HYDROXOCOBALAMIN ACETATE [Suspect]
     Active Substance: HYDROXOCOBALAMIN ACETATE
     Indication: Product used for unknown indication
     Dosage: UNK UNK, DAILY (1 EVERY 1 DAYS)
     Route: 048
  24. IRBESARTAN [Suspect]
     Active Substance: IRBESARTAN
     Indication: Product used for unknown indication
     Dosage: UNK UNK, DAILY (1 EVERY 1 DAYS)
     Route: 048
  25. FERROUS SULFATE ANHYDROUS [Suspect]
     Active Substance: FERROUS SULFATE ANHYDROUS
     Indication: Product used for unknown indication
     Dosage: UNK UNK, DAILY (1 EVERY 1 DAYS)
     Route: 048
  26. METOPROLOL [Suspect]
     Active Substance: METOPROLOL
     Indication: Product used for unknown indication
     Dosage: UNK UNK, DAILY (2 EVERY 1 DAYS)
     Route: 048
  27. METOPROLOL [Suspect]
     Active Substance: METOPROLOL
     Dosage: UNK UNK, BID, (2 EVERY 1 DAYS)
     Route: 065
  28. METOPROLOL [Suspect]
     Active Substance: METOPROLOL
     Dosage: UNK UNK, BID, (2 EVERY 1 DAYS)
     Route: 065
  29. NITROFURANTOIN [Suspect]
     Active Substance: NITROFURANTOIN
     Indication: Product used for unknown indication
     Dosage: UNK UNK, DAILY (2 EVERY 1 DAYS)
     Route: 048
  30. NITROFURANTOIN [Suspect]
     Active Substance: NITROFURANTOIN
     Dosage: UNK UNK, BID (2 EVERY 1 DAYS)
     Route: 065
  31. NITROFURANTOIN [Suspect]
     Active Substance: NITROFURANTOIN
     Dosage: UNK UNK, BID (2 EVERY 1 DAYS)
     Route: 065
  32. OLOPATADINE HYDROCHLORIDE [Suspect]
     Active Substance: OLOPATADINE HYDROCHLORIDE
     Indication: Product used for unknown indication
     Dosage: UNK UNK, DAILY (2 EVERY 1 DAYS)
     Route: 047
  33. OLOPATADINE HYDROCHLORIDE [Suspect]
     Active Substance: OLOPATADINE HYDROCHLORIDE
     Dosage: UNK UNK, BID (2 EVERY 1 DAYS)
     Route: 065
  34. OLOPATADINE HYDROCHLORIDE [Suspect]
     Active Substance: OLOPATADINE HYDROCHLORIDE
     Dosage: UNK UNK, BID (2 EVERY 1 DAYS)
     Route: 065
  35. PANTOPRAZOLE [Suspect]
     Active Substance: PANTOPRAZOLE
     Indication: Product used for unknown indication
     Dosage: UNK
     Route: 048
  36. ALBUTEROL [Suspect]
     Active Substance: ALBUTEROL
     Indication: Product used for unknown indication
     Dosage: UNK
     Route: 065
  37. SYNTHROID [Suspect]
     Active Substance: LEVOTHYROXINE SODIUM
     Indication: Product used for unknown indication
     Dosage: UNK UNK, DAILY (1 EVERY 1 DAYS)
     Route: 048
  38. TOPIRAMATE [Suspect]
     Active Substance: TOPIRAMATE
     Indication: Product used for unknown indication
     Dosage: UNK UNK, DAILY (1 EVERY 1 DAYS)
     Route: 048
  39. ZOPICLONE [Suspect]
     Active Substance: ZOPICLONE
     Indication: Product used for unknown indication
     Dosage: UNK UNK, DAILY (1 EVERY 1 DAYS)
     Route: 048

REACTIONS (1)
  - Death [Fatal]
